FAERS Safety Report 5376719-5 (Version None)
Quarter: 2007Q2

REPORT INFORMATION
  Report Type: 
  Country: None (occurrence: None)
  Receive Date: 20070629
  Receipt Date: 20070629
  Transmission Date: 20071010
  Serious: Yes (Hospitalization)
  Sender: FDA-Public Use
  Company Number: None

PATIENT
  Age: 60 Year
  Sex: Male

DRUGS (1)
  1. MORPHINE [Suspect]
     Indication: PAIN
     Dosage: 30MG TID PO
     Route: 048
     Dates: start: 20070627

REACTIONS (9)
  - BLOOD BICARBONATE INCREASED [None]
  - BLOOD PH DECREASED [None]
  - BRADYPNOEA [None]
  - INCORRECT DOSE ADMINISTERED [None]
  - MEDICATION ERROR [None]
  - MENTAL STATUS CHANGES [None]
  - OXYGEN SATURATION DECREASED [None]
  - PCO2 INCREASED [None]
  - UNRESPONSIVE TO STIMULI [None]
